FAERS Safety Report 5357646-6 (Version None)
Quarter: 2007Q2

REPORT INFORMATION
  Report Type: 
  Country: None (occurrence: None)
  Receive Date: 20070614
  Receipt Date: 20070604
  Transmission Date: 20071010
  Serious: Yes (Death, Hospitalization, Other)
  Sender: FDA-Public Use
  Company Number: US-PFIZER INC-2006080506

PATIENT
  Sex: Male
  Weight: 63.3 kg

DRUGS (1)
  1. CELEBREX [Suspect]
     Dates: start: 19980101, end: 20040801

REACTIONS (4)
  - CEREBROVASCULAR ACCIDENT [None]
  - DEEP VEIN THROMBOSIS [None]
  - MYOCARDIAL INFARCTION [None]
  - RENAL FAILURE [None]
